FAERS Safety Report 5341501-1 (Version None)
Quarter: 2007Q2

REPORT INFORMATION
  Report Type: 
  Country: None (occurrence: None)
  Receive Date: 20070601
  Receipt Date: 20070524
  Transmission Date: 20071010
  Serious: Yes (Hospitalization)
  Sender: FDA-Public Use
  Company Number: PHHO2007JP08976

PATIENT
  Age: 70 Year
  Sex: Female

DRUGS (6)
  1. DIOVAN [Suspect]
     Indication: HYPERTENSION
     Dosage: 160 MG, QD
     Route: 048
     Dates: start: 20030417
  2. FLUITRAN [Concomitant]
  3. LANDEL [Concomitant]
  4. LOCHOL [Concomitant]
  5. ARTIST [Concomitant]
  6. NORVASC [Concomitant]

REACTIONS (4)
  - ANGIOPLASTY [None]
  - ARTERIOSCLEROSIS OBLITERANS [None]
  - CHOLELITHIASIS [None]
  - FATIGUE [None]
